FAERS Safety Report 5127610-0 (Version None)
Quarter: 2006Q4

REPORT INFORMATION
  Report Type: 
  Country: None (occurrence: None)
  Receive Date: 20061016
  Receipt Date: 20060721
  Transmission Date: 20070319
  Serious: Yes (Death, Other)
  Sender: FDA-Public Use
  Company Number: BE-AVENTIS-200614014EU

PATIENT
  Age: 75 Year
  Sex: Male

DRUGS (29)
  1. ENOXAPARIN [Suspect]
     Indication: THROMBOSIS PROPHYLAXIS
     Route: 058
     Dates: start: 20060704, end: 20060717
  2. CO-APROVEL [Concomitant]
     Indication: HYPERTENSION
     Route: 048
     Dates: end: 20060717
  3. DAFALGAN [Concomitant]
     Indication: ANALGESIC EFFECT
     Route: 048
     Dates: end: 20060717
  4. DUOVENT [Concomitant]
     Indication: DYSPNOEA
     Route: 055
     Dates: end: 20060717
  5. EMCORETIC [Concomitant]
     Indication: HYPERTENSION
     Route: 048
     Dates: end: 20060717
  6. LAMISIL [Concomitant]
     Indication: FUNGAL INFECTION
     Route: 048
     Dates: end: 20060717
  7. MYSOLINE [Concomitant]
     Indication: PARKINSON'S DISEASE
     Route: 048
     Dates: end: 20060717
  8. ZANTAC [Concomitant]
     Indication: GASTRIC ULCER
     Route: 048
     Dates: end: 20060717
  9. ALLOPURINOL [Concomitant]
     Indication: HYPERTENSION
     Route: 048
     Dates: end: 20060717
  10. SEROQUEL [Concomitant]
     Indication: CONFUSIONAL STATE
     Route: 048
     Dates: start: 20060707, end: 20060711
  11. CATAPRESSAN                        /00171101/ [Concomitant]
     Indication: HYPERTENSION
     Route: 048
     Dates: start: 20060705, end: 20060717
  12. DIPIDOLOR [Concomitant]
     Indication: ANALGESIC EFFECT
     Route: 030
     Dates: start: 20060705, end: 20060706
  13. LITICAN                            /00690801/ [Concomitant]
     Indication: PROPHYLAXIS
     Route: 042
     Dates: start: 20060705, end: 20060705
  14. NAROPIN [Concomitant]
     Indication: SEDATION
     Route: 008
     Dates: start: 20060705, end: 20060705
  15. PERFUSALGAN [Concomitant]
     Indication: ANALGESIC EFFECT
     Route: 042
     Dates: start: 20060705, end: 20060707
  16. SUFENTANIL CITRATE [Concomitant]
     Indication: SEDATION
     Route: 042
     Dates: start: 20060705, end: 20060705
  17. XANAX [Concomitant]
     Indication: SEDATION
     Route: 048
     Dates: start: 20060705, end: 20060705
  18. CEFAZOLIN [Concomitant]
     Indication: INFECTION PROPHYLAXIS
     Route: 042
     Dates: start: 20060706, end: 20060706
  19. CHIROCAINE                         /01499501/ [Concomitant]
     Indication: SEDATION
     Route: 042
     Dates: start: 20060705, end: 20060705
  20. BENZODIAZEPINE DERIVATIVES [Concomitant]
     Indication: SEDATION
     Route: 042
     Dates: start: 20060705, end: 20060705
  21. EXACYL [Concomitant]
     Indication: SEDATION
     Route: 042
     Dates: start: 20060706, end: 20060706
  22. IMODIUM [Concomitant]
     Indication: DIARRHOEA
     Route: 048
     Dates: start: 20060706, end: 20060706
  23. KEFZOL [Concomitant]
     Indication: SEDATION
     Route: 042
     Dates: start: 20060706, end: 20060706
  24. MARCAIN                            /00044301/ [Concomitant]
     Indication: SEDATION
     Route: 008
     Dates: start: 20060706, end: 20060706
  25. SCANDICAIN [Concomitant]
     Indication: SEDATION
     Route: 048
     Dates: start: 20060706, end: 20060706
  26. ADALAT [Concomitant]
     Indication: HYPERTENSION
     Route: 048
     Dates: start: 20060715, end: 20060715
  27. LASIX [Concomitant]
     Indication: PULMONARY OEDEMA
     Route: 030
     Dates: start: 20060715, end: 20060715
  28. BRONCHOSEDAL DEXTROMETHORPHAN [Concomitant]
     Indication: COUGH
     Route: 048
     Dates: start: 20060708, end: 20060709
  29. ALL OTHER THERAPEUTIC PRODUCTS [Concomitant]
     Indication: FLUID REPLACEMENT
     Route: 042
     Dates: start: 20060706, end: 20060706

REACTIONS (10)
  - BALANCE DISORDER [None]
  - BRAIN STEM INFARCTION [None]
  - CONFUSIONAL STATE [None]
  - COUGH [None]
  - DEATH [None]
  - DYSPNOEA [None]
  - MYOCARDIAL INFARCTION [None]
  - OEDEMA PERIPHERAL [None]
  - PULMONARY EMBOLISM [None]
  - WHEEZING [None]
